FAERS Safety Report 20654328 (Version 2)
Quarter: 2022Q2

REPORT INFORMATION
  Report Type: Spontaneous
  Country: US (occurrence: US)
  Receive Date: 20220330
  Receipt Date: 20220401
  Transmission Date: 20220720
  Serious: Yes (Death, Other)
  Sender: FDA-Public Use
  Company Number: US-PFIZER INC-202200444603

PATIENT
  Sex: Male

DRUGS (3)
  1. MORPHINE SULFATE [Interacting]
     Active Substance: MORPHINE SULFATE
     Dosage: 0.25
  2. LORAZEPAM [Interacting]
     Active Substance: LORAZEPAM
     Dosage: 1 DF
  3. LORAZEPAM [Interacting]
     Active Substance: LORAZEPAM
     Dosage: 2 DF, SINGLE

REACTIONS (10)
  - Drug interaction [Fatal]
  - Dyspnoea [Fatal]
  - Hypopnoea [Unknown]
  - Respiratory rate increased [Unknown]
  - Dysphagia [Unknown]
  - Hypersomnia [Unknown]
  - Productive cough [Unknown]
  - Breath sounds abnormal [Unknown]
  - Condition aggravated [Unknown]
  - Drug ineffective [Unknown]
